FAERS Safety Report 21716013 (Version 1)
Quarter: 2022Q4

REPORT INFORMATION
  Report Type: Spontaneous
  Country: US (occurrence: None)
  Receive Date: 20221209
  Receipt Date: 20221209
  Transmission Date: 20230113
  Serious: No
  Sender: FDA-Public Use
  Company Number: None

PATIENT
  Age: 31 Year
  Sex: Female

DRUGS (1)
  1. CIMZIA [Suspect]
     Active Substance: CERTOLIZUMAB PEGOL
     Indication: Psoriasis
     Dosage: 400MG  OTHER SUBCUTANEOUS?
     Route: 058
     Dates: start: 202211

REACTIONS (3)
  - Pyrexia [None]
  - Anaemia [None]
  - Inflammatory marker increased [None]

NARRATIVE: CASE EVENT DATE: 20221208
